FAERS Safety Report 9870733 (Version 3)
Quarter: 2014Q2

REPORT INFORMATION
  Report Type: Spontaneous
  Country: FR (occurrence: FR)
  Receive Date: 20140205
  Receipt Date: 20140626
  Transmission Date: 20141212
  Serious: Yes (Hospitalization)
  Sender: FDA-Public Use
  Company Number: FR-009507513-1402FRA000268

PATIENT
  Age: 70 Year
  Sex: Male

DRUGS (10)
  1. CLARITYNE [Suspect]
     Indication: SUPERINFECTION
     Dosage: UNK
     Route: 048
     Dates: start: 20130208, end: 20130215
  2. DEXERYL CREAM [Suspect]
     Indication: SUPERINFECTION
     Dosage: UNK
     Route: 003
     Dates: start: 20130208, end: 20130215
  3. PYOSTACINE [Concomitant]
     Indication: SUPERINFECTION
     Dosage: UNK
     Route: 048
     Dates: start: 20130208, end: 20130215
  4. PLAVIX [Concomitant]
     Route: 065
  5. PRAVASTATIN SODIUM [Concomitant]
     Route: 065
  6. MIANSERIN HYDROCHLORIDE [Concomitant]
     Route: 065
  7. DOMPERIDONE [Concomitant]
     Route: 065
  8. INEXIUM [Concomitant]
     Route: 065
  9. DAFALGAN [Concomitant]
     Route: 065
  10. DIPROSONE [Concomitant]

REACTIONS (2)
  - Eczema [Recovered/Resolved]
  - Eosinophilia [Unknown]
